FAERS Safety Report 17150999 (Version 1)
Quarter: 2019Q4

REPORT INFORMATION
  Report Type: Spontaneous
  Country: US (occurrence: US)
  Receive Date: 20191213
  Receipt Date: 20191213
  Transmission Date: 20200122
  Serious: No
  Sender: FDA-Public Use
  Company Number: US-MYLANLABS-2019M1117569

PATIENT
  Sex: Female
  Weight: 81.64 kg

DRUGS (1)
  1. ESTRADIOL TRANSDERMAL SYSTEM [Suspect]
     Active Substance: ESTRADIOL
     Indication: PROPHYLAXIS
     Dosage: 0.05 MILLIGRAM, QD (TWICW A WEEK)
     Route: 062
     Dates: start: 20191107

REACTIONS (5)
  - Malaise [Unknown]
  - Mental disorder [Recovered/Resolved]
  - Off label use [Recovered/Resolved]
  - General physical health deterioration [Recovered/Resolved]
  - Product adhesion issue [Unknown]

NARRATIVE: CASE EVENT DATE: 201911
